FAERS Safety Report 25288999 (Version 1)
Quarter: 2025Q2

REPORT INFORMATION
  Report Type: Spontaneous
  Country: US (occurrence: None)
  Receive Date: 20250509
  Receipt Date: 20250509
  Transmission Date: 20250716
  Serious: No
  Sender: FDA-CTU
  Company Number: None

PATIENT
  Age: 86 Year
  Sex: Female

DRUGS (1)
  1. LENALIDOMIDE [Suspect]
     Active Substance: LENALIDOMIDE
     Indication: Myelodysplastic syndrome
     Dosage: FREQUENCY : DAILY;?
     Route: 048
     Dates: start: 20130606

REACTIONS (3)
  - Haematemesis [None]
  - Thrombosis [None]
  - Anaemia [None]

NARRATIVE: CASE EVENT DATE: 20250409
